FAERS Safety Report 4392376-9 (Version None)
Quarter: 2004Q3

REPORT INFORMATION
  Report Type: 
  Country: None (occurrence: None)
  Receive Date: 20040702
  Receipt Date: 20040308
  Transmission Date: 20050211
  Serious: Yes (Other)
  Sender: FDA-Public Use
  Company Number: 2004UW03071

PATIENT
  Age: 48 Year
  Sex: Male
  Weight: 106.5953 kg

DRUGS (1)
  1. CRESTOR [Suspect]
     Indication: BLOOD CHOLESTEROL INCREASED
     Dosage: 10 MG PO
     Route: 048
     Dates: start: 20040201

REACTIONS (4)
  - AGEUSIA [None]
  - ANOREXIA [None]
  - ARTHRALGIA [None]
  - PAIN IN EXTREMITY [None]
